FAERS Safety Report 23603842 (Version 1)
Quarter: 2024Q1

REPORT INFORMATION
  Report Type: Spontaneous
  Country: GB (occurrence: GB)
  Receive Date: 20240307
  Receipt Date: 20240307
  Transmission Date: 20240409
  Serious: Yes (Other)
  Sender: FDA-Public Use
  Company Number: None

PATIENT

DRUGS (1)
  1. PREDNISOLONE [Suspect]
     Active Substance: PREDNISOLONE
     Indication: Asthma
     Dosage: 30 MG, QD (FOR 5 DAYS)
     Dates: start: 20240222

REACTIONS (1)
  - Central serous chorioretinopathy [Unknown]

NARRATIVE: CASE EVENT DATE: 20240224
